FAERS Safety Report 4434288-8 (Version None)
Quarter: 2004Q3

REPORT INFORMATION
  Report Type: 
  Country: None (occurrence: None)
  Receive Date: 20040825
  Receipt Date: 20040812
  Transmission Date: 20050211
  Serious: Yes (Disabling)
  Sender: FDA-Public Use
  Company Number: 2004055853

PATIENT
  Age: 57 Year
  Sex: Male
  Weight: 86 kg

DRUGS (6)
  1. ATORVASTATIN CALCIUM [Suspect]
     Indication: MIXED HYPERLIPIDAEMIA
     Dosage: 20 MG (1 IN 1 D), ORAL
     Route: 048
  2. ALLOPURINOL [Suspect]
     Indication: ILL-DEFINED DISORDER
     Dosage: 100 MG (1 IN 1 D), ORAL
     Route: 048
  3. TACROLIMUS (TACROLIMUS) [Suspect]
     Indication: HEART TRANSPLANT
     Dosage: 6 MG (3 MG, 2 IN 1 D), ORAL
     Route: 048
  4. CANDESARTAN CILEXETIL (CANDESARTAN CILEXETIL) [Suspect]
     Indication: ESSENTIAL HYPERTENSION
     Dosage: 16 MG (1 IN 1 D), ORAL
     Route: 048
     Dates: start: 20001222
  5. MYCOPHENOLATE MOFETIL (MYCOPHENOLATE MOFETIL) [Suspect]
     Indication: HEART TRANSPLANT
     Dosage: 2000 MG (1000 MG, 2 IN 1 D), ORAL
     Route: 048
  6. RISEDRONATE SODIUM (RISEDRONATE SODIUM) [Suspect]
     Indication: OSTEOPOROSIS
     Dosage: 5 MG (1 IN 1 D), ORAL
     Route: 048

REACTIONS (1)
  - TENDON RUPTURE [None]
